FAERS Safety Report 8927275 (Version 1)
Quarter: 2012Q4

REPORT INFORMATION
  Report Type: 
  Country: US (occurrence: US)
  Receive Date: 20121127
  Receipt Date: 20121127
  Transmission Date: 20130627
  Serious: Yes (Other)
  Sender: FDA-Public Use
  Company Number: US-JNJFOC-20110808967

PATIENT
  Sex: Male

DRUGS (1)
  1. LEVAQUIN [Suspect]
     Indication: PROSTATIC DISORDER
     Route: 048
     Dates: start: 20090430, end: 20090528

REACTIONS (3)
  - Rotator cuff syndrome [Unknown]
  - Tendon disorder [Unknown]
  - Tendon disorder [Unknown]
